FAERS Safety Report 10658566 (Version 2)
Quarter: 2015Q2

REPORT INFORMATION
  Report Type: Spontaneous
  Country: US (occurrence: US)
  Receive Date: 20141217
  Receipt Date: 20150423
  Transmission Date: 20150821
  Serious: Yes (Other)
  Sender: FDA-Public Use
  Company Number: US-RB-071325-14

PATIENT
  Age: 58 Year
  Sex: Female
  Weight: 76 kg

DRUGS (12)
  1. ASPIRIN ADULT LOW STRENGTH [Concomitant]
     Active Substance: ASPIRIN
     Indication: PRODUCT USED FOR UNKNOWN INDICATION
     Route: 065
  2. XYZAL [Concomitant]
     Active Substance: LEVOCETIRIZINE DIHYDROCHLORIDE
     Indication: PRODUCT USED FOR UNKNOWN INDICATION
     Dosage: 5 TABLETS; TAKE 1 TABLET BY MOUTH ONE TIME DAILY IN THE EVENING
     Route: 048
  3. SINGULAIR [Concomitant]
     Active Substance: MONTELUKAST SODIUM
     Indication: PRODUCT USED FOR UNKNOWN INDICATION
     Dosage: 10 TABLET TAKE ONE TABLET BY MOUTH EVERY EVENING AS DIRECTED
     Route: 048
  4. PROCTOCREAM HC [Concomitant]
     Active Substance: HYDROCORTISONE
     Indication: PRODUCT USED FOR UNKNOWN INDICATION
     Dosage: 2.5% CREAM 1 APPLICATION TWICE A DAY
     Route: 061
  5. MUCINEX FAST-MAX COLD, FLU AND SORE THROAT [Suspect]
     Active Substance: ACETAMINOPHEN\DEXTROMETHORPHAN HYDROBROMIDE\GUAIFENESIN\PHENYLEPHRINE HYDROCHLORIDE
     Indication: OROPHARYNGEAL PAIN
     Dosage: INITIALLY TOOK 20ML ON 04-DEC-2014 AND ALSO TOOK 10ML LATER
     Route: 065
     Dates: start: 20141204
  6. WELLBUTRIN [Concomitant]
     Active Substance: BUPROPION HYDROCHLORIDE
     Indication: PRODUCT USED FOR UNKNOWN INDICATION
     Route: 065
  7. METOPROLOL TARTRATE. [Concomitant]
     Active Substance: METOPROLOL TARTRATE
     Indication: PRODUCT USED FOR UNKNOWN INDICATION
     Dosage: 25 TABLETS CONSUMED
     Route: 048
  8. CALCIUM O TABLET [Concomitant]
     Indication: PRODUCT USED FOR UNKNOWN INDICATION
     Dosage: AS DIRECTED,TWICE A DAY
     Route: 065
  9. TRIAMCINOLONE AND EMOLLIENTS [Concomitant]
     Indication: PRODUCT USED FOR UNKNOWN INDICATION
     Dosage: 0.1% KIT TWICE A DAY
     Route: 065
  10. KEFLEX [Concomitant]
     Active Substance: CEPHALEXIN
     Indication: PRODUCT USED FOR UNKNOWN INDICATION
     Route: 065
  11. VITAMIN D TABLET [Concomitant]
     Indication: PRODUCT USED FOR UNKNOWN INDICATION
     Dosage: 1 TABLET TWICE A DAY
     Route: 065
  12. MONTELUKAST SODIUM. [Concomitant]
     Active Substance: MONTELUKAST SODIUM
     Indication: PRODUCT USED FOR UNKNOWN INDICATION
     Route: 065

REACTIONS (11)
  - Aphonia [Recovered/Resolved]
  - Dysphagia [Unknown]
  - Pyrexia [Unknown]
  - Oropharyngeal pain [Unknown]
  - Chills [Unknown]
  - Haemoptysis [Recovered/Resolved]
  - Pharyngitis [Unknown]
  - Pharyngeal oedema [Recovered/Resolved]
  - Throat tightness [Recovered/Resolved]
  - Drug hypersensitivity [Unknown]
  - Productive cough [Unknown]

NARRATIVE: CASE EVENT DATE: 20141204
